FAERS Safety Report 9632196 (Version 3)
Quarter: 2014Q1

REPORT INFORMATION
  Report Type: Report from Study
  Country: US (occurrence: US)
  Receive Date: 20131018
  Receipt Date: 20140220
  Transmission Date: 20141002
  Serious: Yes (Other)
  Sender: FDA-Public Use
  Company Number: US-ABBVIE-13P-163-1156409-00

PATIENT
  Age: 60 Year
  Sex: Female
  Weight: 73.55 kg

DRUGS (13)
  1. HUMIRA [Suspect]
     Indication: PSORIASIS
     Route: 058
     Dates: start: 20121114
  2. PRAVASTATIN [Concomitant]
     Indication: BLOOD CHOLESTEROL INCREASED
     Dosage: AT BEDTIME
  3. NORTRIPTYLINE [Concomitant]
     Indication: PRODUCT USED FOR UNKNOWN INDICATION
     Dosage: AT BEDTIME
  4. ACTONEL [Concomitant]
  5. ESTRA-NORETH [Concomitant]
     Indication: HORMONE REPLACEMENT THERAPY
  6. SERTRALINE [Concomitant]
     Indication: ANXIETY
  7. SERTRALINE [Concomitant]
     Indication: DEPRESSION
  8. ESTRACE [Concomitant]
     Route: 067
  9. FISH OIL [Concomitant]
     Indication: PRODUCT USED FOR UNKNOWN INDICATION
  10. CALCIUM [Concomitant]
     Indication: PRODUCT USED FOR UNKNOWN INDICATION
  11. VITAMIN D3 [Concomitant]
     Indication: PRODUCT USED FOR UNKNOWN INDICATION
  12. ASPIRIN [Concomitant]
     Indication: THROMBOSIS PROPHYLAXIS
  13. MULTIVITAMIN [Concomitant]
     Indication: PRODUCT USED FOR UNKNOWN INDICATION

REACTIONS (3)
  - Hyperkeratosis [Recovered/Resolved]
  - Malignant melanoma [Recovered/Resolved]
  - Malignant melanoma [Recovered/Resolved]
